FAERS Safety Report 9711363 (Version 1)
Quarter: 2013Q4

REPORT INFORMATION
  Report Type: Spontaneous
  Country: US (occurrence: US)
  Receive Date: 20131126
  Receipt Date: 20131126
  Transmission Date: 20140711
  Serious: No
  Sender: FDA-Public Use
  Company Number: US-BRISTOL-MYERS SQUIBB COMPANY-19209220

PATIENT
  Age: 41 Year
  Sex: Female
  Weight: 117 kg

DRUGS (2)
  1. BYETTA [Suspect]
     Dates: start: 201302, end: 20130611
  2. NOVOLIN 70/30 [Concomitant]

REACTIONS (1)
  - Nausea [Unknown]
